FAERS Safety Report 10222293 (Version 1)
Quarter: 2014Q2

REPORT INFORMATION
  Report Type: Spontaneous
  Country: DE (occurrence: DE)
  Receive Date: 20140606
  Receipt Date: 20140606
  Transmission Date: 20141212
  Serious: Yes (Other)
  Sender: FDA-Public Use
  Company Number: DE-GLAXOSMITHKLINE-D0084217A

PATIENT
  Age: 30 Year
  Sex: Female
  Weight: 75 kg

DRUGS (3)
  1. ZOFRAN [Suspect]
     Dosage: 4MG SEE DOSAGE TEXT
     Route: 048
     Dates: start: 20140530, end: 20140530
  2. THEOPHYLLIN [Suspect]
     Dosage: 250MG SEE DOSAGE TEXT
     Route: 048
     Dates: start: 20140530, end: 20140530
  3. TRAMAL LONG [Suspect]
     Dosage: 100MG SEE DOSAGE TEXT
     Route: 048
     Dates: start: 20140530, end: 20140530

REACTIONS (7)
  - Suicide attempt [Unknown]
  - Intentional overdose [Unknown]
  - Loss of consciousness [Unknown]
  - Tachycardia [Unknown]
  - Agonal death struggle [Unknown]
  - Endotracheal intubation [Unknown]
  - Gastric lavage [Unknown]
